FAERS Safety Report 13977209 (Version 1)
Quarter: 2017Q3

REPORT INFORMATION
  Report Type: Spontaneous
  Country: US (occurrence: US)
  Receive Date: 20170915
  Receipt Date: 20170915
  Transmission Date: 20171128
  Serious: No
  Sender: FDA-Public Use
  Company Number: US-ROCHE-675807

PATIENT
  Age: 37 Year
  Sex: Female

DRUGS (1)
  1. HERCEPTIN [Suspect]
     Active Substance: TRASTUZUMAB
     Indication: BREAST CANCER RECURRENT
     Route: 042
     Dates: start: 20090508, end: 20090918

REACTIONS (2)
  - Exposure during pregnancy [Unknown]
  - No adverse event [Unknown]
